FAERS Safety Report 7646555-5 (Version None)
Quarter: 2011Q3

REPORT INFORMATION
  Report Type: 
  Country: None (occurrence: None)
  Receive Date: 20110729
  Receipt Date: 20110729
  Transmission Date: 20111222
  Serious: No
  Sender: FDA-Public Use
  Company Number: None

PATIENT
  Sex: Male
  Weight: 91.6266 kg

DRUGS (1)
  1. ZOLPIDEM TARTRATE 10MG TORRENT PHARMACEUTICAL [Suspect]
     Indication: INSOMNIA
     Dosage: 1 TEN MG TAB EVERYDAY AT BEDTIME PO
     Route: 048
     Dates: start: 20110701, end: 20110707

REACTIONS (4)
  - DRUG INEFFECTIVE [None]
  - PRODUCT COUNTERFEIT [None]
  - PRODUCT SUBSTITUTION ISSUE [None]
  - PRODUCT FORMULATION ISSUE [None]
